FAERS Safety Report 5072328-6 (Version None)
Quarter: 2006Q3

REPORT INFORMATION
  Report Type: 
  Country: None (occurrence: None)
  Receive Date: 20060807
  Receipt Date: 20060727
  Transmission Date: 20061208
  Serious: Yes (Death, Hospitalization, Other)
  Sender: FDA-Public Use
  Company Number: JP-JNJFOC-20060705621

PATIENT
  Age: 9 Month
  Sex: Female

DRUGS (7)
  1. ORTHOCLONE OKT3 [Suspect]
     Indication: TRANSPLANT REJECTION
     Route: 065
  2. FK506 [Suspect]
     Indication: IMMUNOSUPPRESSANT DRUG THERAPY
     Route: 065
  3. ACYCLOVIR [Concomitant]
     Indication: CYTOMEGALOVIRUS INFECTION
     Route: 065
  4. ACYCLOVIR [Concomitant]
     Indication: EPSTEIN-BARR VIRUS INFECTION
     Route: 065
  5. GANCICLOVIR [Concomitant]
     Indication: CYTOMEGALOVIRUS INFECTION
     Route: 065
  6. GANCICLOVIR [Concomitant]
     Indication: EPSTEIN-BARR VIRUS INFECTION
     Route: 065
  7. METHYLPREDNISOLONE [Concomitant]
     Indication: TRANSPLANT REJECTION
     Route: 065

REACTIONS (4)
  - EPSTEIN-BARR VIRUS INFECTION [None]
  - HEPATIC FAILURE [None]
  - LANGERHANS' CELL GRANULOMATOSIS [None]
  - PANCYTOPENIA [None]
